FAERS Safety Report 6258557-4 (Version None)
Quarter: 2009Q3

REPORT INFORMATION
  Report Type: 
  Country: None (occurrence: None)
  Receive Date: 20090707
  Receipt Date: 20090622
  Transmission Date: 20100115
  Serious: Yes (Other)
  Sender: FDA-Public Use
  Company Number: GB-ROCHE-621911

PATIENT
  Sex: Male

DRUGS (6)
  1. PEG-INTERFERON ALFA NOS [Suspect]
     Route: 058
     Dates: start: 20081205, end: 20090528
  2. RIBAVIRIN [Concomitant]
     Route: 048
     Dates: start: 20081205, end: 20090514
  3. METFORMIN HCL [Concomitant]
     Route: 048
  4. GLICLAZIDE [Concomitant]
     Route: 048
  5. RAMIPRIL [Concomitant]
     Indication: BLOOD PRESSURE
     Route: 048
  6. PREDNISOLONE [Concomitant]

REACTIONS (1)
  - FACIAL PALSY [None]
